FAERS Safety Report 15577014 (Version 1)
Quarter: 2018Q4

REPORT INFORMATION
  Report Type: Spontaneous
  Country: US (occurrence: US)
  Receive Date: 20181101
  Receipt Date: 20181101
  Transmission Date: 20190205
  Serious: No
  Sender: FDA-Public Use
  Company Number: US-JNJFOC-20181008718

PATIENT
  Sex: Female

DRUGS (1)
  1. TYLENOL EXTRA STRENGTH [Suspect]
     Active Substance: ACETAMINOPHEN
     Indication: BONE PAIN
     Dosage: 3 CAPLETS
     Route: 048

REACTIONS (3)
  - Therapeutic response unexpected [Unknown]
  - Overdose [Unknown]
  - Product use in unapproved indication [Unknown]
